FAERS Safety Report 17422275 (Version 1)
Quarter: 2020Q1

REPORT INFORMATION
  Report Type: Spontaneous
  Country: CH (occurrence: CH)
  Receive Date: 20200214
  Receipt Date: 20200214
  Transmission Date: 20200409
  Serious: Yes (Other)
  Sender: FDA-Public Use
  Company Number: CH-SEATTLE GENETICS-2020SGN01016

PATIENT
  Sex: Female
  Weight: 40 kg

DRUGS (1)
  1. ADCETRIS [Suspect]
     Active Substance: BRENTUXIMAB VEDOTIN
     Indication: PERIPHERAL T-CELL LYMPHOMA UNSPECIFIED STAGE II
     Dosage: UNK
     Route: 065
     Dates: start: 20181217, end: 20190710

REACTIONS (2)
  - Peripheral T-cell lymphoma unspecified stage II [Unknown]
  - Off label use [Unknown]
